FAERS Safety Report 6053214-1 (Version None)
Quarter: 2009Q1

REPORT INFORMATION
  Report Type: 
  Country: None (occurrence: None)
  Receive Date: 20090123
  Receipt Date: 20090109
  Transmission Date: 20090719
  Serious: Yes (Hospitalization)
  Sender: FDA-Public Use
  Company Number: 2009S1000598

PATIENT
  Age: 70 Year
  Sex: Female

DRUGS (7)
  1. IBUPROFEN TABLETS [Suspect]
     Indication: PAIN IN EXTREMITY
     Dosage: 400 MG; DAILY; ORAL
     Route: 048
     Dates: start: 20080401, end: 20081010
  2. ACETYLSALICYLIC ACID SRT [Suspect]
     Indication: THROMBOSIS PROPHYLAXIS
     Dosage: 100 MG; DAILY; ORAL
     Route: 048
     Dates: start: 20071001, end: 20081011
  3. ACTOS [Concomitant]
  4. DIOVAN HCT [Concomitant]
  5. MANINIL [Concomitant]
  6. TORSEMIDE [Concomitant]
  7. VERAPAMIL [Concomitant]

REACTIONS (1)
  - VARICOSE VEIN RUPTURED [None]
